FAERS Safety Report 23157458 (Version 6)
Quarter: 2024Q2

REPORT INFORMATION
  Report Type: Spontaneous
  Country: US (occurrence: US)
  Receive Date: 20231108
  Receipt Date: 20240613
  Transmission Date: 20240715
  Serious: Yes (Other)
  Sender: FDA-Public Use
  Company Number: US-SA-SAC20231103000014

PATIENT
  Age: 32 Year
  Sex: Male

DRUGS (14)
  1. ALPROLIX [Suspect]
     Active Substance: EFTRENONACOG ALFA
     Indication: Factor IX deficiency
     Dosage: 4000 U, QOW
     Route: 042
     Dates: start: 202201
  2. ALPROLIX [Suspect]
     Active Substance: EFTRENONACOG ALFA
     Indication: Factor IX deficiency
     Dosage: 4000 U, QOW
     Route: 042
     Dates: start: 202201
  3. ALPROLIX [Suspect]
     Active Substance: EFTRENONACOG ALFA
     Dosage: 3000 U, QOW
     Route: 042
  4. ALPROLIX [Suspect]
     Active Substance: EFTRENONACOG ALFA
     Dosage: 3000 U, QOW
     Route: 042
  5. ALPROLIX [Suspect]
     Active Substance: EFTRENONACOG ALFA
     Dosage: 1600 U, QOW
     Route: 042
  6. ALPROLIX [Suspect]
     Active Substance: EFTRENONACOG ALFA
     Dosage: 1600 U, QOW
     Route: 042
  7. ALPROLIX [Suspect]
     Active Substance: EFTRENONACOG ALFA
     Dosage: 600 U, QOW
     Route: 042
  8. ALPROLIX [Suspect]
     Active Substance: EFTRENONACOG ALFA
     Dosage: 600 U, QOW
     Route: 042
  9. ALPROLIX [Suspect]
     Active Substance: EFTRENONACOG ALFA
     Dosage: 8600 U (7740-9460) , QOW
     Route: 042
     Dates: start: 20231218
  10. ALPROLIX [Suspect]
     Active Substance: EFTRENONACOG ALFA
     Dosage: 8600 U (7740-9460) , QOW
     Route: 042
     Dates: start: 20231218
  11. ALPROLIX [Suspect]
     Active Substance: EFTRENONACOG ALFA
     Dosage: 8600 U (7740-9460), EVERY 24-48 HOURS FOR MAJOR BLEEDS (PROPHY, PRN)
     Route: 042
     Dates: start: 20231218
  12. ALPROLIX [Suspect]
     Active Substance: EFTRENONACOG ALFA
     Dosage: 8600 U (7740-9460), EVERY 24-48 HOURS FOR MAJOR BLEEDS (PROPHY, PRN)
     Route: 042
     Dates: start: 20231218
  13. ALPROLIX [Suspect]
     Active Substance: EFTRENONACOG ALFA
     Dosage: 4300 UNITS (3870-4730), EVERY 24-48 HOURS FOR MINOR BLEEDS (PROPHY, PRN)
     Route: 042
     Dates: start: 20231218
  14. ALPROLIX [Suspect]
     Active Substance: EFTRENONACOG ALFA
     Dosage: 4300 UNITS (3870-4730), EVERY 24-48 HOURS FOR MINOR BLEEDS (PROPHY, PRN)
     Route: 042
     Dates: start: 20231218

REACTIONS (8)
  - Haemorrhage [Unknown]
  - Traumatic haemorrhage [Unknown]
  - Joint injury [Unknown]
  - Haemorrhage [Not Recovered/Not Resolved]
  - Fall [Unknown]
  - Traumatic haemorrhage [Recovered/Resolved]
  - Back injury [Unknown]
  - Joint injury [Unknown]

NARRATIVE: CASE EVENT DATE: 20231029
